FAERS Safety Report 10985872 (Version 1)
Quarter: 2015Q2

REPORT INFORMATION
  Report Type: Spontaneous
  Country: US (occurrence: US)
  Receive Date: 20150404
  Receipt Date: 20150404
  Transmission Date: 20150821
  Serious: No
  Sender: FDA-Public Use
  Company Number: US-SA-2014SA129111

PATIENT
  Age: 77 Year
  Sex: Male

DRUGS (4)
  1. ALLEGRA-D [Suspect]
     Active Substance: FEXOFENADINE\PSEUDOEPHEDRINE
     Indication: HYPERSENSITIVITY
     Dosage: FREQUENCY: EVERY MORNING?DOSE:60 MG/120 MG
     Route: 048
  2. ALLEGRA [Suspect]
     Active Substance: FEXOFENADINE HYDROCHLORIDE
     Indication: UPPER-AIRWAY COUGH SYNDROME
     Dosage: FREQUENCY: EVENING
     Route: 048
  3. ALLEGRA-D [Suspect]
     Active Substance: FEXOFENADINE\PSEUDOEPHEDRINE
     Indication: UPPER-AIRWAY COUGH SYNDROME
     Dosage: FREQUENCY: EVERY MORNING?DOSE:60 MG/120 MG
     Route: 048
  4. ALLEGRA [Suspect]
     Active Substance: FEXOFENADINE HYDROCHLORIDE
     Indication: HYPERSENSITIVITY
     Dosage: FREQUENCY: EVENING
     Route: 048

REACTIONS (3)
  - Urine flow decreased [Recovered/Resolved]
  - Wrong technique in drug usage process [Unknown]
  - Mucosal dryness [Recovered/Resolved]
